FAERS Safety Report 5523934-3 (Version None)
Quarter: 2007Q4

REPORT INFORMATION
  Report Type: 
  Country: None (occurrence: None)
  Receive Date: 20071121
  Receipt Date: 20071120
  Transmission Date: 20080405
  Serious: Yes (Hospitalization, Other)
  Sender: FDA-Public Use
  Company Number: US-SHR-US-2007-013420

PATIENT
  Age: 68 Year
  Sex: Female
  Weight: 56.689 kg

DRUGS (4)
  1. BETASERON [Suspect]
     Indication: SECONDARY PROGRESSIVE MULTIPLE SCLEROSIS
     Dosage: 8 MIU, EVERY 2D
     Route: 058
     Dates: start: 20030130, end: 20070204
  2. BETASERON [Suspect]
     Dosage: 8 MIU, EVERY 2D
     Route: 058
     Dates: start: 20070402
  3. METOPROLOL [Concomitant]
     Dosage: 25 MG/D, UNK
     Route: 048
  4. NORVASC [Concomitant]
     Dosage: 2.5 MG/D, UNK

REACTIONS (18)
  - ATRIAL FIBRILLATION [None]
  - CONVULSION [None]
  - CYANOSIS [None]
  - DYSPHAGIA [None]
  - DYSPHASIA [None]
  - HAEMOGLOBIN DECREASED [None]
  - MYOCARDIAL INFARCTION [None]
  - NAUSEA [None]
  - ORGAN FAILURE [None]
  - PARALYSIS [None]
  - PROGRESSIVE MULTIPLE SCLEROSIS [None]
  - STRABISMUS [None]
  - SYNCOPE [None]
  - SYSTEMIC INFLAMMATORY RESPONSE SYNDROME [None]
  - TRANSIENT ISCHAEMIC ATTACK [None]
  - URINARY TRACT INFECTION PSEUDOMONAL [None]
  - UROSEPSIS [None]
  - VOMITING [None]
